FAERS Safety Report 24921337 (Version 2)
Quarter: 2025Q1

REPORT INFORMATION
  Report Type: Report from Study
  Country: US (occurrence: US)
  Receive Date: 20250204
  Receipt Date: 20250313
  Transmission Date: 20250409
  Serious: Yes (Hospitalization)
  Sender: ABBVIE
  Company Number: US-ABBVIE-6100368

PATIENT
  Sex: Female

DRUGS (2)
  1. IMBRUVICA [Suspect]
     Active Substance: IBRUTINIB
     Indication: Chronic lymphocytic leukaemia (in remission)
     Dosage: LAST ADMIN DATE: 2022
     Route: 048
     Dates: start: 20220107
  2. IMBRUVICA [Suspect]
     Active Substance: IBRUTINIB
     Indication: Chronic lymphocytic leukaemia (in remission)
     Route: 048
     Dates: start: 202210

REACTIONS (6)
  - Pleural effusion [Unknown]
  - Cardiac failure [Unknown]
  - Oxygen saturation decreased [Unknown]
  - Chest pain [Unknown]
  - Myocardial infarction [Unknown]
  - Anaemia [Unknown]
